FAERS Safety Report 9437646 (Version 2)
Quarter: 2013Q3

REPORT INFORMATION
  Report Type: Spontaneous
  Country: JP (occurrence: JP)
  Receive Date: 20130802
  Receipt Date: 20130819
  Transmission Date: 20140515
  Serious: Yes (Hospitalization)
  Sender: FDA-Public Use
  Company Number: JP-SANOFI-AVENTIS-2013SA075641

PATIENT
  Age: 68 Year
  Sex: Male
  Weight: 57.6 kg

DRUGS (9)
  1. TAXOTERE [Suspect]
     Indication: NON-SMALL CELL LUNG CANCER
     Route: 041
     Dates: start: 20130205, end: 20130502
  2. TAKEPRON OD [Concomitant]
     Route: 048
  3. WARFARIN [Concomitant]
     Route: 048
  4. ASPENON [Concomitant]
     Route: 048
  5. AMARYL [Concomitant]
     Route: 048
     Dates: start: 201303
  6. CRAVIT [Concomitant]
  7. TOSUXACIN [Concomitant]
     Route: 048
  8. DEXAMETHASONE SODIUM PHOSPHATE [Concomitant]
     Indication: PREMEDICATION
  9. GRANISETRON [Concomitant]
     Indication: PREMEDICATION
     Dosage: INFUSION BAG
     Route: 041

REACTIONS (2)
  - Lung disorder [Recovering/Resolving]
  - Dyspnoea [Recovered/Resolved]
